FAERS Safety Report 5131827-9 (Version None)
Quarter: 2006Q4

REPORT INFORMATION
  Report Type: 
  Country: None (occurrence: None)
  Receive Date: 20061016
  Receipt Date: 20061002
  Transmission Date: 20070319
  Serious: Yes (Hospitalization)
  Sender: FDA-Public Use
  Company Number: 2006064045

PATIENT
  Age: 21 Month
  Sex: Male
  Weight: 10 kg

DRUGS (3)
  1. AZITHROMYCIN [Suspect]
     Indication: PYREXIA
     Dosage: 100 MG (100MG, 1 IN 1 D); ORAL
     Route: 048
     Dates: start: 20060502, end: 20060504
  2. ANHIBA (PARACETAMOL) [Suspect]
     Indication: PYREXIA
     Dosage: 100 MG (100 MG, 1 IN 1 D); ORAL
     Route: 048
     Dates: start: 20060501, end: 20060508
  3. CEFDINIR [Suspect]
     Indication: PYREXIA
     Dosage: 150 MG (50 MG, 3 IN 1 D); ORAL
     Route: 048
     Dates: start: 20060507, end: 20060510

REACTIONS (7)
  - BLOOD BILIRUBIN INCREASED [None]
  - BLOOD LACTATE DEHYDROGENASE INCREASED [None]
  - CHROMATURIA [None]
  - HAEMATOCHEZIA [None]
  - HAEMOGLOBINURIA [None]
  - HAEMOLYTIC ANAEMIA [None]
  - PALLOR [None]
